FAERS Safety Report 15708018 (Version 5)
Quarter: 2020Q1

REPORT INFORMATION
  Report Type: Spontaneous
  Country: GB (occurrence: TW)
  Receive Date: 20181211
  Receipt Date: 20200124
  Transmission Date: 20200409
  Serious: Yes (Other)
  Sender: FDA-Public Use
  Company Number: TW-ASTELLAS-2017US038256

PATIENT
  Age: 45 Year
  Sex: Male

DRUGS (147)
  1. PROGRAF [Suspect]
     Active Substance: TACROLIMUS
     Dosage: UNK, TWICE DAILY (5MG/6MG)
     Route: 065
     Dates: start: 20141231
  2. PROGRAF [Suspect]
     Active Substance: TACROLIMUS
     Route: 065
     Dates: start: 20150110
  3. PROGRAF [Suspect]
     Active Substance: TACROLIMUS
     Route: 065
     Dates: start: 20150112
  4. PROGRAF [Suspect]
     Active Substance: TACROLIMUS
     Route: 065
     Dates: start: 20150113
  5. PROGRAF [Suspect]
     Active Substance: TACROLIMUS
     Route: 065
     Dates: start: 20150125
  6. PROGRAF [Suspect]
     Active Substance: TACROLIMUS
     Dosage: UNK UNK, THRICE DAILY (4.5/4.5/4.0 MG)
     Route: 065
     Dates: start: 20150206
  7. PROGRAF [Suspect]
     Active Substance: TACROLIMUS
     Dosage: UNK UNK, THRICE DAILY (4.0/3.5/3.5 MG)
     Route: 065
     Dates: start: 20150310
  8. PREDNISOLONE. [Suspect]
     Active Substance: PREDNISOLONE
     Dosage: 20 MG, ONCE DAILY (4DF)
     Route: 065
     Dates: start: 20150112
  9. PREDNISOLONE. [Suspect]
     Active Substance: PREDNISOLONE
     Dosage: 15 MG, ONCE DAILY (3DF)
     Route: 065
     Dates: start: 20150209
  10. PREDNISOLONE. [Suspect]
     Active Substance: PREDNISOLONE
     Dosage: 15 MG, ONCE DAILY (3DF)
     Route: 065
     Dates: start: 20150304
  11. PREDNISOLONE. [Suspect]
     Active Substance: PREDNISOLONE
     Dosage: 10 MG, ONCE DAILY (2DF)
     Route: 065
     Dates: start: 20150330
  12. PREDNISOLONE. [Suspect]
     Active Substance: PREDNISOLONE
     Dosage: 10 MG, ONCE DAILY (2DF)
     Route: 065
     Dates: start: 20150409
  13. CELLCEPT [Suspect]
     Active Substance: MYCOPHENOLATE MOFETIL\MYCOPHENOLATE MOFETIL HYDROCHLORIDE
     Dosage: 500 MG, TWICE DAILY (250 MG 2/2 CAPSULES)
     Route: 065
     Dates: start: 20150129
  14. CELLCEPT [Suspect]
     Active Substance: MYCOPHENOLATE MOFETIL\MYCOPHENOLATE MOFETIL HYDROCHLORIDE
     Dosage: 500 MG, TWICE DAILY (250 MG 2/2 CAPSULES)
     Route: 065
     Dates: start: 20150224
  15. CELLCEPT [Suspect]
     Active Substance: MYCOPHENOLATE MOFETIL\MYCOPHENOLATE MOFETIL HYDROCHLORIDE
     Dosage: 500 MG, TWICE DAILY (250 MG 2/2 CAPSULES)
     Route: 065
     Dates: start: 20150318
  16. VALCYTE [Concomitant]
     Active Substance: VALGANCICLOVIR HYDROCHLORIDE
     Route: 048
     Dates: start: 20150124
  17. VALCYTE [Concomitant]
     Active Substance: VALGANCICLOVIR HYDROCHLORIDE
     Route: 048
     Dates: start: 20150126
  18. VALCYTE [Concomitant]
     Active Substance: VALGANCICLOVIR HYDROCHLORIDE
     Route: 048
     Dates: start: 20150206
  19. VALCYTE [Concomitant]
     Active Substance: VALGANCICLOVIR HYDROCHLORIDE
     Route: 048
     Dates: start: 20150224
  20. VALCYTE [Concomitant]
     Active Substance: VALGANCICLOVIR HYDROCHLORIDE
     Route: 048
     Dates: start: 20150312
  21. MYFORTIC [Suspect]
     Active Substance: MYCOPHENOLATE SODIUM
     Indication: TRANSPLANT
     Dosage: UNK UNK, UNKNOWN FREQ.
     Route: 065
  22. PROGRAF [Suspect]
     Active Substance: TACROLIMUS
     Route: 065
     Dates: start: 20150127
  23. PROGRAF [Suspect]
     Active Substance: TACROLIMUS
     Route: 065
     Dates: start: 20150129
  24. PREDNISOLONE. [Suspect]
     Active Substance: PREDNISOLONE
     Dosage: 20 MG, ONCE DAILY (4DF)
     Route: 065
     Dates: start: 20141225
  25. PREDNISOLONE. [Suspect]
     Active Substance: PREDNISOLONE
     Dosage: 15 MG, ONCE DAILY (3DF)
     Route: 065
     Dates: start: 20150121
  26. PREDNISOLONE. [Suspect]
     Active Substance: PREDNISOLONE
     Dosage: 15 MG, ONCE DAILY (3DF)
     Route: 065
     Dates: start: 20150123
  27. PREDNISOLONE. [Suspect]
     Active Substance: PREDNISOLONE
     Dosage: 15 MG, ONCE DAILY (3DF)
     Route: 065
     Dates: start: 20150130
  28. PREDNISOLONE. [Suspect]
     Active Substance: PREDNISOLONE
     Dosage: 15 MG, ONCE DAILY (3DF)
     Route: 065
     Dates: start: 20150202
  29. PREDNISOLONE. [Suspect]
     Active Substance: PREDNISOLONE
     Dosage: 15 MG, ONCE DAILY (3DF)
     Route: 065
     Dates: start: 20150224
  30. PREDNISOLONE. [Suspect]
     Active Substance: PREDNISOLONE
     Dosage: 15 MG, ONCE DAILY (3DF)
     Route: 065
     Dates: start: 20150310
  31. PREDNISOLONE. [Suspect]
     Active Substance: PREDNISOLONE
     Dosage: 15 MG, ONCE DAILY (3DF)
     Route: 065
     Dates: start: 20150312
  32. CELLCEPT [Suspect]
     Active Substance: MYCOPHENOLATE MOFETIL\MYCOPHENOLATE MOFETIL HYDROCHLORIDE
     Dosage: 500 MG, TWICE DAILY (250 MG 2/2 CAPSULES)
     Route: 065
     Dates: start: 20150123
  33. THYMOGLOBULIN [Concomitant]
     Active Substance: LAPINE T-LYMPHOCYTE IMMUNE GLOBULIN
     Indication: TRANSPLANT
     Dosage: 1.25 MG/KG, ONCE DAILY (FOR 10 DAYS)
     Route: 065
  34. VALCYTE [Concomitant]
     Active Substance: VALGANCICLOVIR HYDROCHLORIDE
     Route: 048
     Dates: start: 20150129
  35. VALCYTE [Concomitant]
     Active Substance: VALGANCICLOVIR HYDROCHLORIDE
     Route: 048
     Dates: start: 20150204
  36. VALCYTE [Concomitant]
     Active Substance: VALGANCICLOVIR HYDROCHLORIDE
     Route: 048
     Dates: start: 20150213
  37. VALCYTE [Concomitant]
     Active Substance: VALGANCICLOVIR HYDROCHLORIDE
     Route: 048
     Dates: start: 20150305
  38. HEPARIN [Concomitant]
     Active Substance: HEPARIN SODIUM
     Indication: THROMBOSIS PROPHYLAXIS
     Dosage: UNK UNK, UNKNOWN FREQ. (FOR THE FIRST 5 DAYS POSTOPERATIVELY)
     Route: 065
  39. PROGRAF [Suspect]
     Active Substance: TACROLIMUS
     Route: 065
     Dates: start: 20150124
  40. PROGRAF [Suspect]
     Active Substance: TACROLIMUS
     Dosage: UNK UNK, THRICE DAILY (4.5/4.5/4.0 MG)
     Route: 065
     Dates: start: 20150224
  41. PROGRAF [Suspect]
     Active Substance: TACROLIMUS
     Dosage: UNK UNK, THRICE DAILY (4.5/4.5/4.0 MG)
     Route: 065
     Dates: start: 20150304
  42. PREDNISOLONE. [Suspect]
     Active Substance: PREDNISOLONE
     Dosage: 15 MG, ONCE DAILY (3DF)
     Route: 065
     Dates: start: 20150124
  43. PREDNISOLONE. [Suspect]
     Active Substance: PREDNISOLONE
     Dosage: 15 MG, ONCE DAILY (3DF)
     Route: 065
     Dates: start: 20150206
  44. CELLCEPT [Suspect]
     Active Substance: MYCOPHENOLATE MOFETIL\MYCOPHENOLATE MOFETIL HYDROCHLORIDE
     Dosage: 1 G, TWICE DAILY  (250 MG 4/4 CAPSULES)
     Route: 065
     Dates: start: 20150105
  45. CELLCEPT [Suspect]
     Active Substance: MYCOPHENOLATE MOFETIL\MYCOPHENOLATE MOFETIL HYDROCHLORIDE
     Dosage: 1 G, TWICE DAILY  (250 MG 4/4 CAPSULES)
     Route: 065
     Dates: start: 20150112
  46. CELLCEPT [Suspect]
     Active Substance: MYCOPHENOLATE MOFETIL\MYCOPHENOLATE MOFETIL HYDROCHLORIDE
     Dosage: 500 MG, TWICE DAILY (250 MG 2/2 CAPSULES)
     Route: 065
     Dates: start: 20150312
  47. CELLCEPT [Suspect]
     Active Substance: MYCOPHENOLATE MOFETIL\MYCOPHENOLATE MOFETIL HYDROCHLORIDE
     Dosage: 500 MG, TWICE DAILY (250 MG 2/2 CAPSULES)
     Route: 065
     Dates: start: 20150408
  48. CLOBETASOL PROPIONATE. [Suspect]
     Active Substance: CLOBETASOL PROPIONATE
     Indication: TRANSPLANT
     Dosage: UNK UNK, TWICE WEEKLY (FOR 2 WEEKS)
     Route: 061
  49. SOLU-MEDROL [Concomitant]
     Active Substance: METHYLPREDNISOLONE SODIUM SUCCINATE
     Route: 042
  50. CEFTAZIDIME. [Concomitant]
     Active Substance: CEFTAZIDIME
     Indication: PROPHYLAXIS
     Dosage: UNK UNK, UNKNOWN FREQ.
     Route: 065
  51. VALCYTE [Concomitant]
     Active Substance: VALGANCICLOVIR HYDROCHLORIDE
     Dosage: 450 MG, TWICE DAILY (2 DF)
     Route: 048
     Dates: start: 20150112
  52. VALCYTE [Concomitant]
     Active Substance: VALGANCICLOVIR HYDROCHLORIDE
     Route: 048
     Dates: start: 20150113
  53. VALCYTE [Concomitant]
     Active Substance: VALGANCICLOVIR HYDROCHLORIDE
     Route: 048
     Dates: start: 20150125
  54. VALCYTE [Concomitant]
     Active Substance: VALGANCICLOVIR HYDROCHLORIDE
     Route: 048
     Dates: start: 20150304
  55. PROGRAF [Suspect]
     Active Substance: TACROLIMUS
     Dosage: UNK, TWICE DAILY (6MG/5MG)
     Route: 065
     Dates: start: 20150105
  56. PROGRAF [Suspect]
     Active Substance: TACROLIMUS
     Route: 065
     Dates: start: 20150108
  57. PROGRAF [Suspect]
     Active Substance: TACROLIMUS
     Route: 065
     Dates: start: 20150130
  58. PROGRAF [Suspect]
     Active Substance: TACROLIMUS
     Dosage: UNK UNK, THRICE DAILY (4.5/4.5/4.0 MG)
     Route: 065
     Dates: start: 20150211
  59. PREDNISOLONE. [Suspect]
     Active Substance: PREDNISOLONE
     Dosage: 20 MG, ONCE DAILY (4DF)
     Route: 065
     Dates: start: 20150113
  60. PREDNISOLONE. [Suspect]
     Active Substance: PREDNISOLONE
     Dosage: 15 MG, ONCE DAILY (3DF)
     Route: 065
     Dates: start: 20150129
  61. PREDNISOLONE. [Suspect]
     Active Substance: PREDNISOLONE
     Dosage: 15 MG, ONCE DAILY (3DF)
     Route: 065
     Dates: start: 20150211
  62. PREDNISOLONE. [Suspect]
     Active Substance: PREDNISOLONE
     Dosage: 15 MG, ONCE DAILY (3DF)
     Route: 065
     Dates: start: 20150305
  63. PREDNISOLONE. [Suspect]
     Active Substance: PREDNISOLONE
     Dosage: 15 MG, ONCE DAILY (3DF)
     Route: 065
     Dates: start: 20150318
  64. CELLCEPT [Suspect]
     Active Substance: MYCOPHENOLATE MOFETIL\MYCOPHENOLATE MOFETIL HYDROCHLORIDE
     Route: 065
     Dates: start: 20150124
  65. CELLCEPT [Suspect]
     Active Substance: MYCOPHENOLATE MOFETIL\MYCOPHENOLATE MOFETIL HYDROCHLORIDE
     Dosage: 500 MG, TWICE DAILY (250 MG 2/2 CAPSULES)
     Route: 065
     Dates: start: 20150204
  66. CELLCEPT [Suspect]
     Active Substance: MYCOPHENOLATE MOFETIL\MYCOPHENOLATE MOFETIL HYDROCHLORIDE
     Dosage: 500 MG, TWICE DAILY (250 MG 2/2 CAPSULES)
     Route: 065
     Dates: start: 20150325
  67. SOLU-MEDROL [Concomitant]
     Active Substance: METHYLPREDNISOLONE SODIUM SUCCINATE
     Dosage: 125 MG, UNKNOWN FREQ. (ON POSTOPERATION DAY 1)
     Route: 042
  68. VALCYTE [Concomitant]
     Active Substance: VALGANCICLOVIR HYDROCHLORIDE
     Dosage: 450 MG, TWICE DAILY (2 DF)
     Route: 048
     Dates: start: 20141231
  69. VALCYTE [Concomitant]
     Active Substance: VALGANCICLOVIR HYDROCHLORIDE
     Route: 048
     Dates: start: 20150115
  70. VALCYTE [Concomitant]
     Active Substance: VALGANCICLOVIR HYDROCHLORIDE
     Route: 048
     Dates: start: 20150127
  71. PROGRAF [Suspect]
     Active Substance: TACROLIMUS
     Route: 065
     Dates: start: 20150115
  72. PROGRAF [Suspect]
     Active Substance: TACROLIMUS
     Route: 065
     Dates: start: 20150126
  73. PROGRAF [Suspect]
     Active Substance: TACROLIMUS
     Route: 065
     Dates: start: 20150128
  74. PROGRAF [Suspect]
     Active Substance: TACROLIMUS
     Dosage: UNK UNK, THRICE DAILY (4.5/4.5/4.0 MG)
     Route: 065
     Dates: start: 20150209
  75. PROGRAF [Suspect]
     Active Substance: TACROLIMUS
     Dosage: UNK UNK, THRICE DAILY (4.5/4.5/4.0 MG)
     Route: 065
     Dates: start: 20150305
  76. PREDNISOLONE. [Suspect]
     Active Substance: PREDNISOLONE
     Dosage: 20 MG, ONCE DAILY (4DF)
     Route: 065
     Dates: start: 20141231
  77. PREDNISOLONE. [Suspect]
     Active Substance: PREDNISOLONE
     Dosage: 20 MG, ONCE DAILY (4DF)
     Route: 065
     Dates: start: 20150105
  78. PREDNISOLONE. [Suspect]
     Active Substance: PREDNISOLONE
     Dosage: 20 MG, ONCE DAILY (4DF)
     Route: 065
     Dates: start: 20150108
  79. PREDNISOLONE. [Suspect]
     Active Substance: PREDNISOLONE
     Dosage: 15 MG, ONCE DAILY (3DF)
     Route: 065
     Dates: start: 20150125
  80. CELLCEPT [Suspect]
     Active Substance: MYCOPHENOLATE MOFETIL\MYCOPHENOLATE MOFETIL HYDROCHLORIDE
     Dosage: 1 G, TWICE DAILY  (250 MG 4/4 CAPSULES)
     Route: 065
     Dates: start: 20150108
  81. CELLCEPT [Suspect]
     Active Substance: MYCOPHENOLATE MOFETIL\MYCOPHENOLATE MOFETIL HYDROCHLORIDE
     Dosage: 1 G, TWICE DAILY  (250 MG 4/4 CAPSULES)
     Route: 065
     Dates: start: 20150115
  82. CELLCEPT [Suspect]
     Active Substance: MYCOPHENOLATE MOFETIL\MYCOPHENOLATE MOFETIL HYDROCHLORIDE
     Dosage: 500 MG, TWICE DAILY (250 MG 2/2 CAPSULES)
     Route: 065
     Dates: start: 20150127
  83. CELLCEPT [Suspect]
     Active Substance: MYCOPHENOLATE MOFETIL\MYCOPHENOLATE MOFETIL HYDROCHLORIDE
     Dosage: 500 MG, TWICE DAILY (250 MG 2/2 CAPSULES)
     Route: 065
     Dates: start: 20150130
  84. CELLCEPT [Suspect]
     Active Substance: MYCOPHENOLATE MOFETIL\MYCOPHENOLATE MOFETIL HYDROCHLORIDE
     Dosage: 500 MG, TWICE DAILY (250 MG 2/2 CAPSULES)
     Route: 065
     Dates: start: 20150304
  85. CELLCEPT [Suspect]
     Active Substance: MYCOPHENOLATE MOFETIL\MYCOPHENOLATE MOFETIL HYDROCHLORIDE
     Dosage: 500 MG, TWICE DAILY (250 MG 2/2 CAPSULES)
     Route: 065
     Dates: start: 20150305
  86. TEICOPLANIN [Concomitant]
     Active Substance: TEICOPLANIN
     Indication: PROPHYLAXIS
     Dosage: UNK UNK, UNKNOWN FREQ.
     Route: 065
  87. NYSTATIN. [Concomitant]
     Active Substance: NYSTATIN
     Indication: ANTIFUNGAL PROPHYLAXIS
     Dosage: UNK UNK, UNKNOWN FREQ.
     Route: 065
  88. VALCYTE [Concomitant]
     Active Substance: VALGANCICLOVIR HYDROCHLORIDE
     Dosage: 450 MG, TWICE DAILY (2 DF)
     Route: 048
     Dates: start: 20150105
  89. VALCYTE [Concomitant]
     Active Substance: VALGANCICLOVIR HYDROCHLORIDE
     Route: 048
     Dates: start: 20150123
  90. VALCYTE [Concomitant]
     Active Substance: VALGANCICLOVIR HYDROCHLORIDE
     Route: 048
     Dates: start: 20150128
  91. VALCYTE [Concomitant]
     Active Substance: VALGANCICLOVIR HYDROCHLORIDE
     Route: 048
     Dates: start: 20150310
  92. PROGRAF [Suspect]
     Active Substance: TACROLIMUS
     Route: 065
     Dates: start: 20141229
  93. PROGRAF [Suspect]
     Active Substance: TACROLIMUS
     Route: 065
     Dates: start: 20150123
  94. PROGRAF [Suspect]
     Active Substance: TACROLIMUS
     Dosage: UNK UNK, THRICE DAILY (4.0/3.5/3.5 MG)
     Route: 065
     Dates: start: 20150318
  95. PROGRAF [Suspect]
     Active Substance: TACROLIMUS
     Route: 065
     Dates: start: 20150325
  96. PROGRAF [Suspect]
     Active Substance: TACROLIMUS
     Route: 065
     Dates: start: 20150330
  97. PROTOPIC [Suspect]
     Active Substance: TACROLIMUS
     Indication: TRANSPLANT
     Dosage: UNK UNK, TWICE DAILY (FOR 2 WEEKS)
     Route: 061
  98. PREDNISOLONE. [Suspect]
     Active Substance: PREDNISOLONE
     Indication: TRANSPLANT
     Dosage: 60 MG, ONCE DAILY (SLOWLY TAPERED)
     Route: 048
  99. PREDNISOLONE. [Suspect]
     Active Substance: PREDNISOLONE
     Dosage: 20 MG, ONCE DAILY (4DF)
     Route: 065
     Dates: start: 20141229
  100. PREDNISOLONE. [Suspect]
     Active Substance: PREDNISOLONE
     Dosage: 20 MG, ONCE DAILY (4DF)
     Route: 065
     Dates: start: 20150110
  101. PREDNISOLONE. [Suspect]
     Active Substance: PREDNISOLONE
     Dosage: 15 MG, ONCE DAILY (3DF)
     Route: 065
     Dates: start: 20150115
  102. PREDNISOLONE. [Suspect]
     Active Substance: PREDNISOLONE
     Dosage: 15 MG, ONCE DAILY (3DF)
     Route: 065
     Dates: start: 20150213
  103. PREDNISOLONE. [Suspect]
     Active Substance: PREDNISOLONE
     Dosage: 10 MG, ONCE DAILY (2DF)
     Route: 065
     Dates: start: 20150408
  104. CELLCEPT [Suspect]
     Active Substance: MYCOPHENOLATE MOFETIL\MYCOPHENOLATE MOFETIL HYDROCHLORIDE
     Dosage: 1 G, TWICE DAILY  (250 MG 4/4 CAPSULES)
     Route: 065
     Dates: start: 20141229
  105. CELLCEPT [Suspect]
     Active Substance: MYCOPHENOLATE MOFETIL\MYCOPHENOLATE MOFETIL HYDROCHLORIDE
     Dosage: 1 G, TWICE DAILY  (250 MG 4/4 CAPSULES)
     Route: 065
     Dates: start: 20150113
  106. CELLCEPT [Suspect]
     Active Substance: MYCOPHENOLATE MOFETIL\MYCOPHENOLATE MOFETIL HYDROCHLORIDE
     Dosage: 1 G, TWICE DAILY  (250 MG 4/4 CAPSULES)
     Route: 065
     Dates: start: 20150121
  107. CELLCEPT [Suspect]
     Active Substance: MYCOPHENOLATE MOFETIL\MYCOPHENOLATE MOFETIL HYDROCHLORIDE
     Dosage: 500 MG, TWICE DAILY (250 MG 2/2 CAPSULES)
     Route: 065
     Dates: start: 20150128
  108. CELLCEPT [Suspect]
     Active Substance: MYCOPHENOLATE MOFETIL\MYCOPHENOLATE MOFETIL HYDROCHLORIDE
     Dosage: 500 MG, TWICE DAILY (250 MG 2/2 CAPSULES)
     Route: 065
     Dates: start: 20150202
  109. CELLCEPT [Suspect]
     Active Substance: MYCOPHENOLATE MOFETIL\MYCOPHENOLATE MOFETIL HYDROCHLORIDE
     Dosage: 500 MG, TWICE DAILY (250 MG 2/2 CAPSULES)
     Route: 065
     Dates: start: 20150206
  110. CELLCEPT [Suspect]
     Active Substance: MYCOPHENOLATE MOFETIL\MYCOPHENOLATE MOFETIL HYDROCHLORIDE
     Dosage: 500 MG, TWICE DAILY (250 MG 2/2 CAPSULES)
     Route: 065
     Dates: start: 20150211
  111. VALCYTE [Concomitant]
     Active Substance: VALGANCICLOVIR HYDROCHLORIDE
     Route: 048
     Dates: start: 20150130
  112. ASPIRIN [ACETYLSALICYLIC ACID] [Concomitant]
     Active Substance: ASPIRIN
     Indication: THROMBOSIS PROPHYLAXIS
     Dosage: UNK UNK, UNKNOWN FREQ.
     Route: 065
  113. PROGRAF [Suspect]
     Active Substance: TACROLIMUS
     Indication: TRANSPLANT
     Route: 065
     Dates: start: 20141225
  114. PROGRAF [Suspect]
     Active Substance: TACROLIMUS
     Dosage: UNK UNK, THRICE DAILY (4.5/4.5/4.0 MG)
     Route: 065
     Dates: start: 20150202
  115. PROGRAF [Suspect]
     Active Substance: TACROLIMUS
     Dosage: UNK UNK, THRICE DAILY (4.5/4.5/4.0 MG)
     Route: 065
     Dates: start: 20150204
  116. PROGRAF [Suspect]
     Active Substance: TACROLIMUS
     Dosage: UNK UNK, THRICE DAILY (4.5/4.5/4.0 MG)
     Route: 065
     Dates: start: 20150213
  117. PROGRAF [Suspect]
     Active Substance: TACROLIMUS
     Route: 065
     Dates: start: 20150409
  118. PREDNISOLONE. [Suspect]
     Active Substance: PREDNISOLONE
     Dosage: 15 MG, ONCE DAILY (3DF)
     Route: 065
     Dates: start: 20150126
  119. PREDNISOLONE. [Suspect]
     Active Substance: PREDNISOLONE
     Dosage: 15 MG, ONCE DAILY (3DF)
     Route: 065
     Dates: start: 20150127
  120. PREDNISOLONE. [Suspect]
     Active Substance: PREDNISOLONE
     Dosage: 15 MG, ONCE DAILY (3DF)
     Route: 065
     Dates: start: 20150128
  121. CELLCEPT [Suspect]
     Active Substance: MYCOPHENOLATE MOFETIL\MYCOPHENOLATE MOFETIL HYDROCHLORIDE
     Dosage: 1 G, TWICE DAILY  (250 MG 4/4 CAPSULES)
     Route: 065
     Dates: start: 20150110
  122. CELLCEPT [Suspect]
     Active Substance: MYCOPHENOLATE MOFETIL\MYCOPHENOLATE MOFETIL HYDROCHLORIDE
     Dosage: 500 MG, TWICE DAILY (250 MG 2/2 CAPSULES)
     Route: 065
     Dates: start: 20150125
  123. CELLCEPT [Suspect]
     Active Substance: MYCOPHENOLATE MOFETIL\MYCOPHENOLATE MOFETIL HYDROCHLORIDE
     Dosage: 500 MG, TWICE DAILY (250 MG 2/2 CAPSULES)
     Route: 065
     Dates: start: 20150126
  124. CELLCEPT [Suspect]
     Active Substance: MYCOPHENOLATE MOFETIL\MYCOPHENOLATE MOFETIL HYDROCHLORIDE
     Dosage: 500 MG, TWICE DAILY (250 MG 2/2 CAPSULES)
     Route: 065
     Dates: start: 20150310
  125. CELLCEPT [Suspect]
     Active Substance: MYCOPHENOLATE MOFETIL\MYCOPHENOLATE MOFETIL HYDROCHLORIDE
     Dosage: 500 MG, TWICE DAILY (250 MG 2/2 CAPSULES)
     Route: 065
     Dates: start: 20150330
  126. CELLCEPT [Suspect]
     Active Substance: MYCOPHENOLATE MOFETIL\MYCOPHENOLATE MOFETIL HYDROCHLORIDE
     Dosage: 500 MG, TWICE DAILY (250 MG 2/2 CAPSULES)
     Route: 065
     Dates: start: 20150409
  127. SOLU-MEDROL [Concomitant]
     Active Substance: METHYLPREDNISOLONE SODIUM SUCCINATE
     Indication: TRANSPLANT
     Route: 042
  128. COTRIMOXAZOLE [Concomitant]
     Active Substance: SULFAMETHOXAZOLE\TRIMETHOPRIM
     Indication: ANTIFUNGAL PROPHYLAXIS
     Dosage: 400 MG/80 MG, UNKNOWN FREQ.
     Route: 065
  129. GANCICLOVIR. [Concomitant]
     Active Substance: GANCICLOVIR
     Indication: ANTIVIRAL PROPHYLAXIS
     Dosage: 10 MG/KG, ONCE DAILY (FOR 7 DAYS)
     Route: 042
  130. VALCYTE [Concomitant]
     Active Substance: VALGANCICLOVIR HYDROCHLORIDE
     Dosage: 450 MG, TWICE DAILY (2 DF)
     Route: 048
     Dates: start: 20141229
  131. VALCYTE [Concomitant]
     Active Substance: VALGANCICLOVIR HYDROCHLORIDE
     Dosage: 450 MG, TWICE DAILY (2 DF)
     Route: 048
     Dates: start: 20150108
  132. VALCYTE [Concomitant]
     Active Substance: VALGANCICLOVIR HYDROCHLORIDE
     Route: 048
     Dates: start: 20150121
  133. VALCYTE [Concomitant]
     Active Substance: VALGANCICLOVIR HYDROCHLORIDE
     Route: 048
     Dates: start: 20150202
  134. VALCYTE [Concomitant]
     Active Substance: VALGANCICLOVIR HYDROCHLORIDE
     Route: 048
     Dates: start: 20150209
  135. VALCYTE [Concomitant]
     Active Substance: VALGANCICLOVIR HYDROCHLORIDE
     Route: 048
     Dates: start: 20150318
  136. PROGRAF [Suspect]
     Active Substance: TACROLIMUS
     Route: 065
     Dates: start: 20150121
  137. PROGRAF [Suspect]
     Active Substance: TACROLIMUS
     Dosage: UNK UNK, THRICE DAILY (4.0/3.5/3.5 MG)
     Route: 065
     Dates: start: 20150312
  138. PROGRAF [Suspect]
     Active Substance: TACROLIMUS
     Route: 065
     Dates: start: 20150408
  139. PREDNISOLONE. [Suspect]
     Active Substance: PREDNISOLONE
     Dosage: 15 MG, ONCE DAILY (3DF)
     Route: 065
     Dates: start: 20150204
  140. PREDNISOLONE. [Suspect]
     Active Substance: PREDNISOLONE
     Dosage: 10 MG, ONCE DAILY (2DF)
     Route: 065
     Dates: start: 20150325
  141. CELLCEPT [Suspect]
     Active Substance: MYCOPHENOLATE MOFETIL\MYCOPHENOLATE MOFETIL HYDROCHLORIDE
     Indication: TRANSPLANT
     Dosage: 1 G, TWICE DAILY (250 MG 4/4 CAPSULES)
     Route: 065
     Dates: start: 20141225
  142. CELLCEPT [Suspect]
     Active Substance: MYCOPHENOLATE MOFETIL\MYCOPHENOLATE MOFETIL HYDROCHLORIDE
     Dosage: 1 G, TWICE DAILY  (250 MG 4/4 CAPSULES)
     Route: 065
     Dates: start: 20141231
  143. CELLCEPT [Suspect]
     Active Substance: MYCOPHENOLATE MOFETIL\MYCOPHENOLATE MOFETIL HYDROCHLORIDE
     Dosage: 500 MG, TWICE DAILY (250 MG 2/2 CAPSULES)
     Route: 065
     Dates: start: 20150209
  144. CELLCEPT [Suspect]
     Active Substance: MYCOPHENOLATE MOFETIL\MYCOPHENOLATE MOFETIL HYDROCHLORIDE
     Dosage: 500 MG, TWICE DAILY (250 MG 2/2 CAPSULES)
     Route: 065
     Dates: start: 20150213
  145. VALCYTE [Concomitant]
     Active Substance: VALGANCICLOVIR HYDROCHLORIDE
     Indication: ANTIVIRAL PROPHYLAXIS
     Dosage: 450 MG, TWICE DAILY (2 DF)
     Route: 048
     Dates: start: 20141225
  146. VALCYTE [Concomitant]
     Active Substance: VALGANCICLOVIR HYDROCHLORIDE
     Dosage: 450 MG, TWICE DAILY (2 DF)
     Route: 048
     Dates: start: 20150110
  147. VALCYTE [Concomitant]
     Active Substance: VALGANCICLOVIR HYDROCHLORIDE
     Route: 048
     Dates: start: 20150211

REACTIONS (7)
  - Inappropriate schedule of product administration [Unknown]
  - White blood cell count decreased [Unknown]
  - Musculoskeletal pain [Recovering/Resolving]
  - Osteonecrosis [Recovering/Resolving]
  - Transplant rejection [Recovered/Resolved]
  - Bone infarction [Recovering/Resolving]
  - Product use in unapproved indication [Unknown]
